FAERS Safety Report 6353335-X (Version None)
Quarter: 2009Q3

REPORT INFORMATION
  Report Type: 
  Country: None (occurrence: None)
  Receive Date: 20090912
  Receipt Date: 20080918
  Transmission Date: 20100115
  Serious: No
  Sender: FDA-Public Use
  Company Number: US-BAUSCH-2008BL004078

PATIENT
  Sex: Female

DRUGS (1)
  1. TROPICAMIDE [Suspect]
     Indication: CATARACT
     Route: 047
     Dates: start: 20080701

REACTIONS (2)
  - EYELID DISORDER [None]
  - PALLOR [None]
